FAERS Safety Report 7682912-9 (Version None)
Quarter: 2011Q3

REPORT INFORMATION
  Report Type: 
  Country: None (occurrence: None)
  Receive Date: 20110815
  Receipt Date: 20110805
  Transmission Date: 20111222
  Serious: Yes (Hospitalization)
  Sender: FDA-Public Use
  Company Number: ES-ROCHE-795268

PATIENT
  Sex: Female
  Weight: 62 kg

DRUGS (18)
  1. NITROGLYCERIN [Concomitant]
     Route: 062
     Dates: start: 20080101
  2. OMEPRAZOLE [Concomitant]
     Dates: start: 20080101
  3. ENALAPRIL MALEATE [Concomitant]
     Dates: start: 20110510
  4. ASPIRIN [Concomitant]
     Dates: start: 20080101
  5. MYCOPHENOLATE MOFETIL [Suspect]
     Route: 048
  6. MYCOPHENOLATE MOFETIL [Suspect]
     Route: 048
     Dates: start: 20110720
  7. BISOPROLOL FUMARATE [Concomitant]
  8. MYCOPHENOLATE MOFETIL [Suspect]
     Route: 048
     Dates: start: 20110325
  9. FUROSEMIDE [Concomitant]
     Dates: start: 20080101
  10. PRAVASTATIN [Concomitant]
     Dates: start: 20080101
  11. MYCOPHENOLATE MOFETIL [Suspect]
     Indication: ANTI-NEUTROPHIL CYTOPLASMIC ANTIBODY POSITIVE VASCULITIS
     Route: 048
     Dates: start: 20110216
  12. PREDNISONE [Concomitant]
  13. PREDNISONE [Concomitant]
     Dates: start: 20110705
  14. COTRIM [Concomitant]
     Dosage: DOSE: 800/160MG
  15. CLOPIDOGREL [Concomitant]
     Dates: start: 20110218
  16. ALENDRONATE SODIUM [Concomitant]
     Dates: start: 20110218
  17. BISOPROLOL FUMARATE [Concomitant]
     Dates: start: 20080101
  18. CALCIUM/VITAMIN D [Concomitant]
     Dates: start: 20110205

REACTIONS (1)
  - PULMONARY EMBOLISM [None]
